FAERS Safety Report 10167892 (Version 1)
Quarter: 2014Q2

REPORT INFORMATION
  Report Type: Spontaneous
  Country: US (occurrence: US)
  Receive Date: 20140512
  Receipt Date: 20140512
  Transmission Date: 20141212
  Serious: No
  Sender: FDA-Public Use
  Company Number: US-009507513-2012SP023984

PATIENT
  Age: 6 Year
  Sex: Male

DRUGS (3)
  1. CLARITIN ORAL SOLUTION [Suspect]
     Indication: NASOPHARYNGITIS
     Dosage: 10 MG, ONCE
     Route: 048
     Dates: start: 20120424
  2. CLARITIN ORAL SOLUTION [Suspect]
     Indication: HYPERSENSITIVITY
  3. CLARITIN [Concomitant]
     Indication: HYPERSENSITIVITY
     Dosage: 5 MG, ONCE
     Dates: start: 20120424

REACTIONS (1)
  - Overdose [Recovering/Resolving]
